FAERS Safety Report 8285923-8 (Version None)
Quarter: 2012Q2

REPORT INFORMATION
  Report Type: 
  Country: None (occurrence: None)
  Receive Date: 20120415
  Receipt Date: 20120402
  Transmission Date: 20120825
  Serious: Yes (Other)
  Sender: FDA-Public Use
  Company Number: FR-MYLANLABS-2012S1006919

PATIENT
  Age: 73 Year
  Sex: Female

DRUGS (9)
  1. NEXIUM [Concomitant]
     Indication: PRODUCT USED FOR UNKNOWN INDICATION
  2. PACLITAXEL [Suspect]
     Indication: BREAST CANCER
     Dates: start: 20120215
  3. HERCEPTIN [Concomitant]
     Indication: NEOPLASM MALIGNANT
     Route: 042
     Dates: start: 20120229, end: 20120229
  4. ZANTAC [Concomitant]
     Indication: PRODUCT USED FOR UNKNOWN INDICATION
     Route: 042
     Dates: start: 20120229
  5. PACLITAXEL [Suspect]
     Route: 042
     Dates: start: 20120229, end: 20120229
  6. MORPHINE SULFATE [Concomitant]
     Indication: PRODUCT USED FOR UNKNOWN INDICATION
  7. DEXAMETHASONE [Concomitant]
     Indication: PRODUCT USED FOR UNKNOWN INDICATION
     Route: 042
     Dates: start: 20120229
  8. POLARAMINE [Concomitant]
     Indication: PRODUCT USED FOR UNKNOWN INDICATION
     Route: 042
     Dates: start: 20120229
  9. MORPHINE SULFATE [Concomitant]
     Indication: PRODUCT USED FOR UNKNOWN INDICATION

REACTIONS (2)
  - BACK PAIN [None]
  - ERYTHROSIS [None]
